FAERS Safety Report 4534690-X (Version None)
Quarter: 2004Q4

REPORT INFORMATION
  Report Type: 
  Country: None (occurrence: None)
  Receive Date: 20041222
  Receipt Date: 20031022
  Transmission Date: 20050328
  Serious: No
  Sender: FDA-Public Use
  Company Number: US-BRISTOL-MYERS SQUIBB COMPANY-12418745

PATIENT
  Age: 50 Year
  Sex: Female
  Weight: 92 kg

DRUGS (4)
  1. PRAVACHOL [Suspect]
     Indication: BLOOD CHOLESTEROL INCREASED
     Dosage: PATIENT STOPPED DRUG ON 06-OCT-2003 AS A DECHALLENGE AND RESTARTED ON 17-OCT-2003.
     Route: 048
     Dates: start: 20030916, end: 20031022
  2. ASPIRIN [Concomitant]
  3. CENESTIN [Concomitant]
  4. DYAZIDE [Concomitant]
     Dosage: DOSAGE FORM=37.5/25 TABLET

REACTIONS (1)
  - CONTUSION [None]
